FAERS Safety Report 20245796 (Version 1)
Quarter: 2021Q4

REPORT INFORMATION
  Report Type: Spontaneous
  Country: CN (occurrence: CN)
  Receive Date: 20211229
  Receipt Date: 20211229
  Transmission Date: 20220303
  Serious: Yes (Hospitalization, Other)
  Sender: FDA-Public Use
  Company Number: CN-Nexus Pharma-000057

PATIENT
  Age: 50 Year
  Sex: Male

DRUGS (3)
  1. ARSENIC TRIOXIDE [Suspect]
     Active Substance: ARSENIC TRIOXIDE
     Indication: Acute promyelocytic leukaemia
     Route: 042
     Dates: start: 201903
  2. DAUNORUBICIN [Suspect]
     Active Substance: DAUNORUBICIN
     Indication: Acute promyelocytic leukaemia
     Dates: start: 201903
  3. TRETINOIN [Suspect]
     Active Substance: TRETINOIN
     Indication: Acute promyelocytic leukaemia
     Dosage: ORAL ALL-TRANS RETINOIC (20 MG)
     Route: 048
     Dates: start: 201903

REACTIONS (2)
  - Osteonecrosis of jaw [Unknown]
  - Hepatitis [Unknown]

NARRATIVE: CASE EVENT DATE: 20190101
